FAERS Safety Report 22826630 (Version 2)
Quarter: 2024Q2

REPORT INFORMATION
  Report Type: Report from Study
  Country: US (occurrence: US)
  Receive Date: 20230816
  Receipt Date: 20240408
  Transmission Date: 20240716
  Serious: No
  Sender: FDA-Public Use
  Company Number: US-002147023-NVSC2023US177689

PATIENT
  Sex: Female

DRUGS (1)
  1. TABRECTA [Suspect]
     Active Substance: CAPMATINIB
     Indication: Product used for unknown indication
     Dosage: 150 MG AND 200 MG BID
     Route: 065
     Dates: start: 20230705

REACTIONS (2)
  - Pancreatic enzymes increased [Unknown]
  - Hepatic enzyme abnormal [Unknown]
